FAERS Safety Report 7100330-9 (Version None)
Quarter: 2010Q4

REPORT INFORMATION
  Report Type: 
  Country: None (occurrence: None)
  Receive Date: 20101112
  Receipt Date: 20101019
  Transmission Date: 20110411
  Serious: Yes (Hospitalization)
  Sender: FDA-Public Use
  Company Number: GB-AMGEN-GBRCT2010000772

PATIENT

DRUGS (5)
  1. ETANERCEPT [Suspect]
     Indication: JUVENILE ARTHRITIS
     Dosage: 12.5 MG, 2 TIMES/WK
  2. PIROXICAM [Concomitant]
     Route: 048
     Dates: start: 20010601
  3. PREDNISOLONE [Concomitant]
     Dosage: UNKNOWN
     Dates: start: 20020401
  4. PREDNISOLONE [Concomitant]
     Dosage: 1MG / 0.5 MG ON ALTERNATE DAYS
     Dates: start: 20020423
  5. STEROID ANTIBACTERIALS [Concomitant]
     Dosage: UNK
     Route: 014

REACTIONS (1)
  - SYNOVECTOMY [None]
